FAERS Safety Report 7634070-4 (Version None)
Quarter: 2011Q3

REPORT INFORMATION
  Report Type: 
  Country: None (occurrence: None)
  Receive Date: 20110725
  Receipt Date: 20110718
  Transmission Date: 20111222
  Serious: Yes (Other)
  Sender: FDA-Public Use
  Company Number: DE-ABBOTT-11P-062-0840077-00

PATIENT
  Sex: Male
  Weight: 64.5 kg

DRUGS (4)
  1. KALETRA [Suspect]
     Indication: HIV INFECTION
     Dosage: BID
     Route: 048
     Dates: start: 20080327
  2. TRUVADA [Concomitant]
     Indication: HIV INFECTION
     Route: 048
     Dates: start: 20080327
  3. DOXORUBICIN HYDROCHLORIDE [Concomitant]
     Indication: KAPOSI'S SARCOMA
     Dosage: 36MG IN 250ML GLUCOSE 5%
     Dates: start: 20100107, end: 20100325
  4. GRANISETRON [Concomitant]
     Indication: KAPOSI'S SARCOMA
     Route: 042
     Dates: start: 20100107, end: 20100325

REACTIONS (1)
  - KAPOSI'S SARCOMA [None]
